FAERS Safety Report 5497421-5 (Version None)
Quarter: 2007Q4

REPORT INFORMATION
  Report Type: 
  Country: None (occurrence: None)
  Receive Date: 20071025
  Receipt Date: 20070703
  Transmission Date: 20080405
  Serious: No
  Sender: FDA-Public Use
  Company Number: US-BRISTOL-MYERS SQUIBB COMPANY-13834262

PATIENT
  Sex: Male

DRUGS (3)
  1. GLUCOPHAGE XR [Suspect]
     Indication: DIABETES MELLITUS
     Route: 048
     Dates: start: 20070501
  2. HYDROCHLOROTHIAZIDE [Concomitant]
  3. AVANDIA [Concomitant]

REACTIONS (1)
  - BLOOD GLUCOSE INCREASED [None]
